FAERS Safety Report 11047020 (Version 3)
Quarter: 2015Q2

REPORT INFORMATION
  Report Type: Spontaneous
  Country: US (occurrence: US)
  Receive Date: 20150420
  Receipt Date: 20150629
  Transmission Date: 20150821
  Serious: Yes (Hospitalization)
  Sender: FDA-Public Use
  Company Number: US-JNJFOC-20150406995

PATIENT
  Age: 78 Year
  Sex: Male
  Weight: 112 kg

DRUGS (10)
  1. ADEMPAS [Suspect]
     Active Substance: RIOCIGUAT
     Indication: PULMONARY ARTERIAL HYPERTENSION
     Route: 048
  2. ADEMPAS [Suspect]
     Active Substance: RIOCIGUAT
     Indication: PULMONARY ARTERIAL HYPERTENSION
     Route: 048
  3. XARELTO [Suspect]
     Active Substance: RIVAROXABAN
     Indication: PRODUCT USED FOR UNKNOWN INDICATION
     Route: 048
  4. VENTAVIS [Concomitant]
     Active Substance: ILOPROST
     Route: 065
  5. TYVASO [Suspect]
     Active Substance: TREPROSTINIL
     Indication: PRODUCT USED FOR UNKNOWN INDICATION
     Route: 065
  6. LETAIRIS [Concomitant]
     Active Substance: AMBRISENTAN
     Route: 065
  7. ADEMPAS [Suspect]
     Active Substance: RIOCIGUAT
     Indication: PULMONARY ARTERIAL HYPERTENSION
     Route: 048
  8. ADEMPAS [Suspect]
     Active Substance: RIOCIGUAT
     Indication: PULMONARY ARTERIAL HYPERTENSION
     Route: 048
     Dates: start: 20140404
  9. ADEMPAS [Suspect]
     Active Substance: RIOCIGUAT
     Indication: PULMONARY ARTERIAL HYPERTENSION
     Route: 048
     Dates: start: 20140529
  10. ASPIRIN. [Concomitant]
     Active Substance: ASPIRIN
     Route: 065

REACTIONS (17)
  - Fatigue [Not Recovered/Not Resolved]
  - Haemoglobin abnormal [Unknown]
  - Diarrhoea [Unknown]
  - Pulmonary alveolar haemorrhage [Recovering/Resolving]
  - Malaise [Unknown]
  - Dyspnoea [Unknown]
  - Blood glucose decreased [Unknown]
  - Asthenia [Unknown]
  - Loss of consciousness [Unknown]
  - Flank pain [Unknown]
  - Blood iron decreased [Unknown]
  - Hypercoagulation [Unknown]
  - Dyspnoea [Unknown]
  - Oedema peripheral [Unknown]
  - Pulmonary haemorrhage [Unknown]
  - Rectal haemorrhage [Unknown]
  - Blood pressure abnormal [Unknown]

NARRATIVE: CASE EVENT DATE: 201405
